FAERS Safety Report 15428653 (Version 2)
Quarter: 2020Q1

REPORT INFORMATION
  Report Type: Report from Study
  Country: ES (occurrence: ES)
  Receive Date: 20180926
  Receipt Date: 20200213
  Transmission Date: 20200409
  Serious: Yes (Other)
  Sender: FDA-Public Use
  Company Number: ES-TEVA-2018-ES-957090

PATIENT
  Age: 61 Year
  Sex: Female

DRUGS (7)
  1. ACETYLSALICYLIC ACID [Concomitant]
     Active Substance: ASPIRIN
     Indication: PREMEDICATION
     Route: 065
  2. CETIRIZINE [Concomitant]
     Active Substance: CETIRIZINE HYDROCHLORIDE
     Indication: PREMEDICATION
     Route: 065
  3. DEXCHLORPHENIRAMINE [Concomitant]
     Active Substance: DEXCHLORPHENIRAMINE
     Indication: PREMEDICATION
     Route: 065
  4. MONTELUKAST [Concomitant]
     Active Substance: MONTELUKAST SODIUM
     Indication: PREMEDICATION
     Route: 065
  5. OXALIPLATINO TEVA 5 MG/ML [Suspect]
     Active Substance: OXALIPLATIN
     Indication: IMMUNE TOLERANCE INDUCTION
     Dosage: SCHEDULED TO START AT THE INFUSION RATE OF 5 ML/H WITH INCREASED RATE AT EACH 15 MINUTES TO 10, 2.,
     Route: 050
  6. RANITIDINE. [Concomitant]
     Active Substance: RANITIDINE
     Indication: PREMEDICATION
     Route: 042
  7. ACETYLSALICYLIC ACID [Concomitant]
     Active Substance: ASPIRIN
     Indication: PREMEDICATION
     Route: 065

REACTIONS (4)
  - Dysphonia [Recovered/Resolved]
  - Pruritus [Unknown]
  - Pruritus [Unknown]
  - Rash [Recovered/Resolved]

NARRATIVE: CASE EVENT DATE: 20200131
